FAERS Safety Report 8659115 (Version 6)
Quarter: 2013Q3

REPORT INFORMATION
  Report Type: Spontaneous
  Country: US (occurrence: US)
  Receive Date: 20120711
  Receipt Date: 20130820
  Transmission Date: 20140515
  Serious: Yes (Hospitalization)
  Sender: FDA-Public Use
  Company Number: US-BIOGENIDEC-2012BI023430

PATIENT
  Age: 49 Year
  Sex: Male

DRUGS (4)
  1. AVONEX [Suspect]
     Indication: MULTIPLE SCLEROSIS
     Route: 030
     Dates: start: 19990427, end: 200308
  2. AVONEX [Suspect]
     Indication: MULTIPLE SCLEROSIS
     Route: 030
     Dates: start: 200308, end: 20120625
  3. AVONEX [Suspect]
     Indication: MULTIPLE SCLEROSIS
     Route: 030
     Dates: start: 20120702
  4. TYLENOL [Concomitant]
     Indication: PREMEDICATION
     Dates: start: 1999

REACTIONS (37)
  - Cardiac valve rupture [Recovered/Resolved]
  - Poor quality sleep [Not Recovered/Not Resolved]
  - Sexual dysfunction [Not Recovered/Not Resolved]
  - Diabetes mellitus [Recovered/Resolved]
  - Amnesia [Unknown]
  - Paranoia [Not Recovered/Not Resolved]
  - Fall [Recovered/Resolved]
  - Anger [Unknown]
  - Memory impairment [Not Recovered/Not Resolved]
  - Cognitive disorder [Not Recovered/Not Resolved]
  - Hypotonia [Not Recovered/Not Resolved]
  - Tension [Not Recovered/Not Resolved]
  - Coordination abnormal [Not Recovered/Not Resolved]
  - Sleep apnoea syndrome [Not Recovered/Not Resolved]
  - Temperature intolerance [Not Recovered/Not Resolved]
  - Loss of consciousness [Not Recovered/Not Resolved]
  - Mental disorder [Not Recovered/Not Resolved]
  - Haemorrhage [Recovered/Resolved]
  - Arthropathy [Not Recovered/Not Resolved]
  - Osteoporosis [Not Recovered/Not Resolved]
  - Prothrombin time abnormal [Unknown]
  - Coagulopathy [Not Recovered/Not Resolved]
  - Blood pressure increased [Unknown]
  - Gait disturbance [Not Recovered/Not Resolved]
  - Stress [Unknown]
  - Sinus congestion [Unknown]
  - Sneezing [Unknown]
  - Dizziness [Not Recovered/Not Resolved]
  - Fatigue [Not Recovered/Not Resolved]
  - Suicidal ideation [Not Recovered/Not Resolved]
  - Feeling abnormal [Unknown]
  - Depression [Not Recovered/Not Resolved]
  - Musculoskeletal stiffness [Not Recovered/Not Resolved]
  - Pain [Not Recovered/Not Resolved]
  - Arthritis [Not Recovered/Not Resolved]
  - Neck pain [Not Recovered/Not Resolved]
  - Influenza like illness [Recovered/Resolved]
